FAERS Safety Report 6118748 (Version 2)
Quarter: 2014Q3

REPORT INFORMATION
  Report Type: Spontaneous
  Country: TR (occurrence: TR)
  Receive Date: 20060830
  Receipt Date: 20140704
  Transmission Date: 20150326
  Serious: No
  Sender: FDA-Public Use
  Company Number: TR-ROCHE-460732

PATIENT
  Age: 24 Year
  Sex: Male

DRUGS (1)
  1. INTERFERON ALFA-2A [Suspect]
     Active Substance: INTERFERON ALFA-2A
     Indication: CHRONIC HEPATITIS B
     Dosage: THREE MILLION UNITS
     Route: 058

REACTIONS (1)
  - Influenza like illness [Recovered/Resolved]
